FAERS Safety Report 11053852 (Version 1)
Quarter: 2015Q2

REPORT INFORMATION
  Report Type: Spontaneous
  Country: GB (occurrence: GB)
  Receive Date: 20150421
  Receipt Date: 20150421
  Transmission Date: 20150821
  Serious: Yes (Other)
  Sender: FDA-Public Use
  Company Number: ALCN2015GB002477

PATIENT
  Sex: Male

DRUGS (2)
  1. MAXIDEX [Suspect]
     Active Substance: DEXAMETHASONE
     Indication: UVEITIS
     Dosage: UNK
     Route: 047
     Dates: start: 20150405, end: 20150408
  2. MYDRILATE [Suspect]
     Active Substance: CYCLOPENTOLATE HYDROCHLORIDE
     Indication: UVEITIS
     Dosage: UNK
     Dates: start: 20150405, end: 20150408

REACTIONS (11)
  - Violence-related symptom [Recovering/Resolving]
  - Dysgeusia [Recovering/Resolving]
  - Feeling abnormal [None]
  - Crying [Recovering/Resolving]
  - Palpitations [Recovering/Resolving]
  - Feeling abnormal [Recovering/Resolving]
  - Anxiety [Recovering/Resolving]
  - Heart rate increased [Recovering/Resolving]
  - Tension [Recovering/Resolving]
  - Labyrinthitis [None]
  - Dry mouth [Recovering/Resolving]

NARRATIVE: CASE EVENT DATE: 20150406
